FAERS Safety Report 5936924-3 (Version None)
Quarter: 2008Q4

REPORT INFORMATION
  Report Type: 
  Country: None (occurrence: None)
  Receive Date: 20081021
  Receipt Date: 20071018
  Transmission Date: 20090506
  Serious: Yes (Hospitalization, Other)
  Sender: FDA-Public Use
  Company Number: US-WYE-H00767407

PATIENT
  Age: 82 Year
  Sex: Female

DRUGS (1)
  1. PREMARIN [Suspect]
     Indication: MENOPAUSAL SYMPTOMS
     Dosage: 0.625MG UNOPPOSED ONCE WEEKLY, ORAL
     Route: 048
     Dates: start: 19770101, end: 20071009

REACTIONS (1)
  - ENDOMETRIAL CANCER [None]
